FAERS Safety Report 6780801-5 (Version None)
Quarter: 2010Q2

REPORT INFORMATION
  Report Type: 
  Country: None (occurrence: None)
  Receive Date: 20100621
  Receipt Date: 20100602
  Transmission Date: 20101027
  Serious: Yes (Other)
  Sender: FDA-Public Use
  Company Number: US-BAYER-200941337NA

PATIENT
  Age: 28 Year
  Sex: Female
  Weight: 43 kg

DRUGS (5)
  1. YAZ [Suspect]
     Indication: DRUG USE FOR UNKNOWN INDICATION
     Dates: start: 20060101, end: 20071001
  2. YASMIN [Suspect]
     Indication: DRUG USE FOR UNKNOWN INDICATION
     Dates: start: 20070101
  3. MOTRIN [Concomitant]
     Dates: start: 20051101
  4. TYLENOL [Concomitant]
  5. NYQUIL [Concomitant]

REACTIONS (2)
  - GALLBLADDER DISORDER [None]
  - PAIN [None]
